FAERS Safety Report 13424400 (Version 1)
Quarter: 2017Q2

REPORT INFORMATION
  Report Type: Spontaneous
  Country: US (occurrence: US)
  Receive Date: 20170410
  Receipt Date: 20170410
  Transmission Date: 20170830
  Serious: Yes (Death, Other)
  Sender: FDA-Public Use
  Company Number: US-BAYER-2017-064049

PATIENT
  Age: 63 Year
  Sex: Male

DRUGS (2)
  1. BAYER LOW DOSE [Suspect]
     Active Substance: ASPIRIN
     Dosage: UNK
  2. APIXABAN [Interacting]
     Active Substance: APIXABAN
     Indication: ATRIAL FIBRILLATION

REACTIONS (3)
  - Haemorrhage intracranial [Fatal]
  - Labelled drug-drug interaction medication error [Fatal]
  - Drug administration error [Fatal]
